FAERS Safety Report 14707826 (Version 3)
Quarter: 2018Q2

REPORT INFORMATION
  Report Type: Report from Study
  Country: FR (occurrence: FR)
  Receive Date: 20180403
  Receipt Date: 20180524
  Transmission Date: 20180711
  Serious: Yes (Death, Hospitalization, Other)
  Sender: FDA-Public Use
  Company Number: PHHY2017FR162198

PATIENT
  Age: 61 Year
  Sex: Female
  Weight: 47 kg

DRUGS (6)
  1. AUGMENTIN [Concomitant]
     Active Substance: AMOXICILLIN\CLAVULANATE POTASSIUM
     Indication: INFECTION SUSCEPTIBILITY INCREASED
     Route: 065
     Dates: start: 20171020, end: 20171023
  2. LASILIX [Concomitant]
     Active Substance: FUROSEMIDE
     Indication: PERICARDIAL EFFUSION
     Dosage: 40 MG, UNK
     Route: 065
     Dates: start: 20171017, end: 20171023
  3. ZARZIO [Suspect]
     Active Substance: FILGRASTIM
     Indication: PROPHYLAXIS
     Dosage: 30 MIU, UNK
     Route: 058
     Dates: start: 20170910, end: 20171004
  4. FUROSEMIDE. [Concomitant]
     Active Substance: FUROSEMIDE
     Indication: DIURETIC THERAPY
     Dosage: 20 MG, UNK
     Route: 065
     Dates: start: 20171003
  5. VANCOMYCIN [Concomitant]
     Active Substance: VANCOMYCIN
     Indication: VIRAL INFECTION
     Route: 065
     Dates: start: 20171017, end: 20171020
  6. FUROSEMIDE. [Concomitant]
     Active Substance: FUROSEMIDE
     Indication: PERICARDIAL EFFUSION

REACTIONS (6)
  - Device related infection [Fatal]
  - Interstitial lung disease [Fatal]
  - Productive cough [Fatal]
  - Dyspnoea exertional [Fatal]
  - Inflammation [Fatal]
  - Purulent discharge [Fatal]

NARRATIVE: CASE EVENT DATE: 20171002
